FAERS Safety Report 10128341 (Version 1)
Quarter: 2014Q2

REPORT INFORMATION
  Report Type: Spontaneous
  Country: US (occurrence: US)
  Receive Date: 20140428
  Receipt Date: 20140428
  Transmission Date: 20141212
  Serious: No
  Sender: FDA-Public Use
  Company Number: US-BIOGENIDEC-2014BI036692

PATIENT
  Age: 54 Year
  Sex: Female

DRUGS (15)
  1. TECFIDERA [Suspect]
     Indication: MULTIPLE SCLEROSIS
     Route: 048
     Dates: start: 20140326
  2. AMITIZA [Concomitant]
     Indication: PRODUCT USED FOR UNKNOWN INDICATION
  3. DOXYCYCLINE HYCLATE [Concomitant]
     Indication: PRODUCT USED FOR UNKNOWN INDICATION
  4. LYRICA [Concomitant]
     Indication: PRODUCT USED FOR UNKNOWN INDICATION
  5. MORPHINE SULFATE [Concomitant]
     Indication: PRODUCT USED FOR UNKNOWN INDICATION
  6. MORPHINE SULFATE CR [Concomitant]
     Indication: PRODUCT USED FOR UNKNOWN INDICATION
  7. OMEPRAZOLE [Concomitant]
     Indication: PRODUCT USED FOR UNKNOWN INDICATION
  8. ONDANSETRON HCL [Concomitant]
     Indication: PRODUCT USED FOR UNKNOWN INDICATION
  9. REQUIP [Concomitant]
     Indication: PRODUCT USED FOR UNKNOWN INDICATION
  10. ROPINIROLE HCL [Concomitant]
     Indication: PRODUCT USED FOR UNKNOWN INDICATION
  11. TRAZODONE HCL [Concomitant]
     Indication: PRODUCT USED FOR UNKNOWN INDICATION
  12. TREXIMET [Concomitant]
     Indication: PRODUCT USED FOR UNKNOWN INDICATION
  13. WELCHOL [Concomitant]
     Indication: PRODUCT USED FOR UNKNOWN INDICATION
  14. ADVIL [Concomitant]
  15. LACTULOSE [Concomitant]

REACTIONS (3)
  - Adverse event [Unknown]
  - Abdominal pain [Unknown]
  - Skin burning sensation [Unknown]
